FAERS Safety Report 18292921 (Version 21)
Quarter: 2022Q1

REPORT INFORMATION
  Report Type: Report from Study
  Country: DE (occurrence: DE)
  Receive Date: 20200921
  Receipt Date: 20220317
  Transmission Date: 20220423
  Serious: Yes (Hospitalization, Other)
  Sender: FDA-Public Use
  Company Number: DE-ROCHE-2546129

PATIENT
  Age: 42 Year
  Sex: Female
  Weight: 61 kg

DRUGS (113)
  1. OXYCODONE HYDROCHLORIDE [Suspect]
     Active Substance: OXYCODONE HYDROCHLORIDE
     Indication: Pain
     Dosage: 10 MG, BID (TOGETHER WITH NALAXONE)
     Route: 065
     Dates: end: 20210513
  2. OXYCODONE HYDROCHLORIDE [Suspect]
     Active Substance: OXYCODONE HYDROCHLORIDE
     Dosage: 20 MG, BID
     Route: 065
     Dates: end: 20210513
  3. NABIXIMOLS [Suspect]
     Active Substance: NABIXIMOLS
     Indication: Product used for unknown indication
     Dosage: 2 DF, ( 2-2-2, 2 PUFFS EACH)
     Route: 065
     Dates: start: 202007
  4. PANTOPRAZOLE [Suspect]
     Active Substance: PANTOPRAZOLE
     Indication: Product used for unknown indication
     Dosage: 20 MG, UNK
     Route: 065
  5. OCREVUS [Suspect]
     Active Substance: OCRELIZUMAB
     Indication: Secondary progressive multiple sclerosis
     Dosage: 600 MG, (168 DAY INTERVAL)
     Route: 042
     Dates: start: 20210715
  6. OCREVUS [Suspect]
     Active Substance: OCRELIZUMAB
     Dosage: 600 MG, (168 DAY INTERVAL) (2X 10 MILLILITRES)
     Route: 042
     Dates: start: 20200813
  7. OCREVUS [Suspect]
     Active Substance: OCRELIZUMAB
     Dosage: 300 MG, UNK
     Route: 042
     Dates: start: 20200220
  8. OCREVUS [Suspect]
     Active Substance: OCRELIZUMAB
     Dosage: 600 MG, (168 DAY INTERVAL)
     Route: 042
     Dates: start: 20200206
  9. CORTISONE [Suspect]
     Active Substance: CORTISONE
     Indication: Product used for unknown indication
     Dosage: 3000 MG, DAILY (1000 MG, 3X/DAY)
     Route: 065
  10. NALOXONE HYDROCHLORIDE [Suspect]
     Active Substance: NALOXONE HYDROCHLORIDE
     Indication: Product used for unknown indication
     Dosage: 5 MG, BID (TOGETHER WITH OXYCODON)
     Route: 065
     Dates: end: 20210513
  11. AMITRIPTYLINE [Concomitant]
     Active Substance: AMITRIPTYLINE
     Indication: Pain
     Dosage: 25 MG, DAILY
  12. AMITRIPTYLINE [Concomitant]
     Active Substance: AMITRIPTYLINE
     Dosage: 25 MG, DAILY (25 MG, 1X/DAY)
     Route: 048
     Dates: start: 2019
  13. AMITRIPTYLINE [Concomitant]
     Active Substance: AMITRIPTYLINE
     Dosage: 25 MG, DAILY (0-0-1)
  14. AMITRIPTYLINE [Concomitant]
     Active Substance: AMITRIPTYLINE
  15. AMITRIPTYLINE [Concomitant]
     Active Substance: AMITRIPTYLINE
     Dosage: 25 MG, DAILY (0-0-1)
  16. AMITRIPTYLINE [Concomitant]
     Active Substance: AMITRIPTYLINE
  17. AMITRIPTYLINE [Concomitant]
     Active Substance: AMITRIPTYLINE
     Dosage: 25 MG, DAILY (0-0-1)
  18. AMITRIPTYLINE [Concomitant]
     Active Substance: AMITRIPTYLINE
  19. AMITRIPTYLINE [Concomitant]
     Active Substance: AMITRIPTYLINE
     Dosage: 25 MG, DAILY (0-0-1)
  20. AMITRIPTYLINE [Concomitant]
     Active Substance: AMITRIPTYLINE
     Dosage: 50 MG, DAILY (0-0-1)
  21. AMITRIPTYLINE [Concomitant]
     Active Substance: AMITRIPTYLINE
     Dosage: 25 MG, DAILY (0-0-1)
  22. AMITRIPTYLINE [Concomitant]
     Active Substance: AMITRIPTYLINE
     Dosage: 50 MG, DAILY (0-0-1)
  23. AMITRIPTYLINE [Concomitant]
     Active Substance: AMITRIPTYLINE
     Dosage: 25 MG, DAILY (0-0-1)
  24. AMITRIPTYLINE [Concomitant]
     Active Substance: AMITRIPTYLINE
     Dosage: 50 MG, DAILY (0-0-1)
  25. AMITRIPTYLINE [Concomitant]
     Active Substance: AMITRIPTYLINE
     Dosage: 25 MG, DAILY (0-0-1)
  26. AMITRIPTYLINE [Concomitant]
     Active Substance: AMITRIPTYLINE
     Dosage: 50 MG, DAILY (0-0-1)
  27. AMITRIPTYLINE [Concomitant]
     Active Substance: AMITRIPTYLINE
     Dosage: 25 MG, DAILY (0-0-1)
     Route: 048
  28. AMITRIPTYLINE [Concomitant]
     Active Substance: AMITRIPTYLINE
     Dosage: 50 MG, DAILY (0-0-1)
  29. AMITRIPTYLINE [Concomitant]
     Active Substance: AMITRIPTYLINE
     Dosage: 25 MG, DAILY (0-0-1)
     Route: 065
  30. AMITRIPTYLINE [Concomitant]
     Active Substance: AMITRIPTYLINE
     Dosage: 50 MG, DAILY (0-0-1)
     Route: 065
  31. AMITRIPTYLINE [Concomitant]
     Active Substance: AMITRIPTYLINE
     Dosage: 25 MG, DAILY (0-0-1)
  32. AMITRIPTYLINE [Concomitant]
     Active Substance: AMITRIPTYLINE
     Dosage: 50 MG, DAILY (0-0-1)
     Route: 065
  33. ACETAMINOPHEN [Concomitant]
     Active Substance: ACETAMINOPHEN
     Dosage: UNK (UP TO 3 TIMES PER DAY)
  34. ACETAMINOPHEN [Concomitant]
     Active Substance: ACETAMINOPHEN
     Dosage: UNK UNK, DAILY (UNK UNK, TID)
  35. ACETAMINOPHEN [Concomitant]
     Active Substance: ACETAMINOPHEN
     Dosage: 1 DF, DAILY (UNK UNK, TID)
  36. ACETAMINOPHEN [Concomitant]
     Active Substance: ACETAMINOPHEN
     Dosage: UNK
     Route: 065
  37. ACETAMINOPHEN [Concomitant]
     Active Substance: ACETAMINOPHEN
     Dosage: UP TO 3 TIMES PER DAY
  38. PREGABALIN [Concomitant]
     Active Substance: PREGABALIN
     Indication: Pain
     Dosage: 200 MG, TID (100MG 2-2-2)
  39. PREGABALIN [Concomitant]
     Active Substance: PREGABALIN
     Dosage: 600 MG, UNK
  40. PREGABALIN [Concomitant]
     Active Substance: PREGABALIN
     Dosage: 200 MG, TID
  41. PREGABALIN [Concomitant]
     Active Substance: PREGABALIN
     Dosage: 200 MG, TID (100MG 2-2-2)
  42. PREGABALIN [Concomitant]
     Active Substance: PREGABALIN
     Dosage: 600 MG, UNK
  43. PREGABALIN [Concomitant]
     Active Substance: PREGABALIN
     Dosage: 200 MG, TID
  44. PREGABALIN [Concomitant]
     Active Substance: PREGABALIN
     Dosage: 100 MG, TID (100MG 2-2-2)
  45. PREGABALIN [Concomitant]
     Active Substance: PREGABALIN
     Dosage: 600 MG, UNK
  46. PREGABALIN [Concomitant]
     Active Substance: PREGABALIN
     Dosage: 200 MG, TID
  47. PREGABALIN [Concomitant]
     Active Substance: PREGABALIN
     Dosage: 100 MG, TID (0.16/ DAY) (2-2-2)
  48. PREGABALIN [Concomitant]
     Active Substance: PREGABALIN
     Dosage: 600 MG, UNK
  49. PREGABALIN [Concomitant]
     Active Substance: PREGABALIN
     Dosage: 200 MG, TID (0.33/ DAY)
  50. PREGABALIN [Concomitant]
     Active Substance: PREGABALIN
     Dosage: 200 MG, TID (0.16/ DAY) (2-2-2)
  51. PREGABALIN [Concomitant]
     Active Substance: PREGABALIN
     Dosage: 600 MG, UNK
  52. PREGABALIN [Concomitant]
     Active Substance: PREGABALIN
     Dosage: 200 MG, UNK (0.33/ DAY)
  53. PREGABALIN [Concomitant]
     Active Substance: PREGABALIN
     Dosage: 100 MG, 0.16/ DAY (2-2-2)
  54. PREGABALIN [Concomitant]
     Active Substance: PREGABALIN
     Dosage: 600 MG, UNK
  55. PREGABALIN [Concomitant]
     Active Substance: PREGABALIN
     Dosage: 200 MG, UNK (0.33/ DAY)
  56. PREGABALIN [Concomitant]
     Active Substance: PREGABALIN
     Dosage: 600 MG, UNK
     Route: 048
     Dates: start: 2019
  57. PREGABALIN [Concomitant]
     Active Substance: PREGABALIN
     Dosage: 600 MG, UNK
  58. PREGABALIN [Concomitant]
     Active Substance: PREGABALIN
     Dosage: 100 MG, 0.16/ DAY (2-2-2)
  59. PREGABALIN [Concomitant]
     Active Substance: PREGABALIN
     Dosage: 200 MG, UNK (0.33/ DAY)
  60. PREGABALIN [Concomitant]
     Active Substance: PREGABALIN
     Dosage: 600 MG, UNK
  61. PREGABALIN [Concomitant]
     Active Substance: PREGABALIN
     Dosage: 100 MG, 0.16/ DAY (2-2-2)
  62. PREGABALIN [Concomitant]
     Active Substance: PREGABALIN
     Dosage: 200 MG, UNK (0.33/ DAY)
  63. PREGABALIN [Concomitant]
     Active Substance: PREGABALIN
     Dosage: 600 MG, UNK
  64. PREGABALIN [Concomitant]
     Active Substance: PREGABALIN
     Dosage: 100 MG, 0.16/ DAY (2-2-2)
  65. PREGABALIN [Concomitant]
     Active Substance: PREGABALIN
     Dosage: 200 MG, UNK (0.33/ DAY)
  66. PREGABALIN [Concomitant]
     Active Substance: PREGABALIN
     Dosage: 600 MG, UNK
  67. PREGABALIN [Concomitant]
     Active Substance: PREGABALIN
     Dosage: 100 MG, 0.16/ DAY (2-2-2)
  68. PREGABALIN [Concomitant]
     Active Substance: PREGABALIN
     Dosage: 200 MG, UNK (0.33/ DAY)
  69. PREGABALIN [Concomitant]
     Active Substance: PREGABALIN
     Dosage: 600 MG, UNK
  70. PREGABALIN [Concomitant]
     Active Substance: PREGABALIN
     Dosage: 100 MG, 0.16/ DAY (2-2-2)
  71. PREGABALIN [Concomitant]
     Active Substance: PREGABALIN
     Dosage: 200 MG, UNK (0.33/ DAY)
  72. PREGABALIN [Concomitant]
     Active Substance: PREGABALIN
     Dosage: 600 MG, UNK
  73. PREGABALIN [Concomitant]
     Active Substance: PREGABALIN
     Dosage: 100 MG, 0.16/ DAY (2-2-2)
  74. PREGABALIN [Concomitant]
     Active Substance: PREGABALIN
     Dosage: 200 MG, UNK (0.33/ DAY)
  75. PREGABALIN [Concomitant]
     Active Substance: PREGABALIN
     Dosage: 600 MG, UNK
  76. PREGABALIN [Concomitant]
     Active Substance: PREGABALIN
     Dosage: 100 MG, 0.16/ DAY (2-2-2)
  77. PREGABALIN [Concomitant]
     Active Substance: PREGABALIN
     Dosage: 200 MG, UNK (0.33/ DAY)
  78. PREGABALIN [Concomitant]
     Active Substance: PREGABALIN
     Dosage: 600 MG, UNK
  79. PREGABALIN [Concomitant]
     Active Substance: PREGABALIN
     Dosage: 100 MG, 0.16/ DAY (2-2-2) [FREQ:16 D;2-2-2]
  80. PREGABALIN [Concomitant]
     Active Substance: PREGABALIN
     Dosage: 200 MG, UNK (0.33/ DAY) [FREQ: 33 D]
  81. PREGABALIN [Concomitant]
     Active Substance: PREGABALIN
     Dosage: 300 MG, DAILY (100 MILLIGRAM, TID)
  82. PREGABALIN [Concomitant]
     Active Substance: PREGABALIN
     Dosage: 600 MG, UNK
  83. PREGABALIN [Concomitant]
     Active Substance: PREGABALIN
     Dosage: 100 MG, 0.16/ DAY (2-2-2) [FREQ:16 D;2-2-2]
  84. PREGABALIN [Concomitant]
     Active Substance: PREGABALIN
     Dosage: 200 MG, UNK (0.33/ DAY) [FREQ: 33 D]
  85. PREGABALIN [Concomitant]
     Active Substance: PREGABALIN
     Dosage: 300 MG, DAILY (100 MILLIGRAM, TID)
  86. PREGABALIN [Concomitant]
     Active Substance: PREGABALIN
     Dosage: 600 MG, UNK
  87. PREGABALIN [Concomitant]
     Active Substance: PREGABALIN
     Dosage: 100 MG, 0.16/ DAY (2-2-2) [FREQ:16 D;2-2-2]
  88. PREGABALIN [Concomitant]
     Active Substance: PREGABALIN
     Dosage: 200 MG, UNK (0.33/ DAY) [FREQ: 33 D]
  89. PREGABALIN [Concomitant]
     Active Substance: PREGABALIN
     Dosage: 300 MG, DAILY (100 MILLIGRAM, TID)
  90. PREGABALIN [Concomitant]
     Active Substance: PREGABALIN
     Dosage: 600 MG, UNK
  91. PREGABALIN [Concomitant]
     Active Substance: PREGABALIN
     Dosage: 100 MG, UNK (FREQ:.16 D;2-2-2)
  92. PREGABALIN [Concomitant]
     Active Substance: PREGABALIN
     Dosage: 200 MG, UNK (0.33/ DAY) [FREQ: 33 D]
  93. PREGABALIN [Concomitant]
     Active Substance: PREGABALIN
     Dosage: 300 MG, DAILY (100 MILLIGRAM, TID)
  94. PREGABALIN [Concomitant]
     Active Substance: PREGABALIN
     Dosage: 600 MG, UNK
  95. PREGABALIN [Concomitant]
     Active Substance: PREGABALIN
     Dosage: 100 MG, UNK (FREQ:.16 D;2-2-2)
  96. PREGABALIN [Concomitant]
     Active Substance: PREGABALIN
     Dosage: 200 MG, UNK (0.33/ DAY) [FREQ: 33 D]
  97. PREGABALIN [Concomitant]
     Active Substance: PREGABALIN
     Dosage: 600 MG, UNK
  98. PREGABALIN [Concomitant]
     Active Substance: PREGABALIN
     Dosage: 100 MG, UNK (FREQ:.16 D;2-2-2)
  99. PREGABALIN [Concomitant]
     Active Substance: PREGABALIN
     Dosage: 200 MG, UNK (0.33/ DAY) [FREQ: 33 D]
  100. MIRTAZAPINE [Concomitant]
     Active Substance: MIRTAZAPINE
     Dosage: 7.5 MG, UNK
  101. DESOGESTREL [Concomitant]
     Active Substance: DESOGESTREL
     Dosage: UNK
  102. DESOGESTREL [Concomitant]
     Active Substance: DESOGESTREL
     Route: 065
  103. DESOGESTREL [Concomitant]
     Active Substance: DESOGESTREL
     Dosage: UNK
  104. MOVICOL                            /01749801/ [Concomitant]
     Dosage: UNK (1-0-0)
  105. MOVICOL                            /01749801/ [Concomitant]
     Dosage: UNK UNK, DAILY (1-0-0)
  106. MOVICOL                            /01749801/ [Concomitant]
     Dosage: 1 UNK, DAILY (1-0-0)
  107. MOVICOL                            /01749801/ [Concomitant]
     Dosage: 1 DF, DAILY
  108. MOVICOL                            /01749801/ [Concomitant]
     Dosage: UNK
     Route: 065
  109. MOVICOL                            /01749801/ [Concomitant]
     Dosage: UNK, DAILY
  110. DULOXETINE [Concomitant]
     Active Substance: DULOXETINE
     Dosage: 30 MG, UNK (0.5 DAILY) (1-0-1)
     Route: 065
  111. DULOXETINE [Concomitant]
     Active Substance: DULOXETINE
     Dosage: 60 MG, DAILY (30 MILLIGRAM, BID)
     Route: 065
  112. DULOXETINE [Concomitant]
     Active Substance: DULOXETINE
     Dosage: 30 MG, UNK
     Route: 065
  113. DULOXETINE [Concomitant]
     Active Substance: DULOXETINE
     Dosage: 30 MG, BID (1-0-1)

REACTIONS (57)
  - Loss of consciousness [Unknown]
  - Multiple sclerosis relapse [Recovered/Resolved]
  - Benign neoplasm of thyroid gland [Not Recovered/Not Resolved]
  - Thyroid mass [Not Recovered/Not Resolved]
  - Dry skin [Recovered/Resolved]
  - Urinary incontinence [Recovered/Resolved]
  - Ocular discomfort [Recovering/Resolving]
  - Alopecia [Recovered/Resolved]
  - Musculoskeletal stiffness [Recovered/Resolved]
  - Constipation [Recovered/Resolved]
  - Pain [Recovering/Resolving]
  - Anal incontinence [Recovered/Resolved]
  - Head discomfort [Recovered/Resolved]
  - Back pain [Recovered/Resolved]
  - Mood swings [Recovered/Resolved]
  - Dyskinesia [Recovered/Resolved]
  - Cognitive disorder [Recovered/Resolved]
  - Menstruation irregular [Unknown]
  - Photophobia [Recovered/Resolved]
  - Tongue movement disturbance [Recovering/Resolving]
  - Memory impairment [Unknown]
  - Muscular weakness [Recovered/Resolved]
  - Joint range of motion decreased [Recovered/Resolved]
  - Odynophagia [Recovering/Resolving]
  - Vaginal discharge [Unknown]
  - Muscle spasticity [Recovered/Resolved]
  - Coordination abnormal [Recovered/Resolved]
  - Feeling cold [Recovered/Resolved]
  - Hyperacusis [Recovered/Resolved]
  - Fungal skin infection [Recovered/Resolved]
  - Pain in extremity [Not Recovered/Not Resolved]
  - Sensory disturbance [Recovering/Resolving]
  - Irritability [Recovering/Resolving]
  - Painful respiration [Recovered/Resolved]
  - Muscle spasms [Recovered/Resolved]
  - Eye pain [Recovered/Resolved]
  - Fall [Unknown]
  - Dyspnoea [Recovered/Resolved]
  - Speech disorder [Recovered/Resolved]
  - Chills [Recovered/Resolved]
  - Dysphagia [Recovered/Resolved]
  - Vomiting [Recovered/Resolved]
  - Headache [Not Recovered/Not Resolved]
  - Fatigue [Recovered/Resolved]
  - Fatigue [Recovered/Resolved]
  - Fatigue [Recovered/Resolved]
  - Asthenia [Recovered/Resolved]
  - Arthralgia [Recovering/Resolving]
  - Tooth injury [Recovered/Resolved]
  - Nail ridging [Not Recovered/Not Resolved]
  - Weight increased [Recovered/Resolved]
  - Acne pustular [Recovered/Resolved]
  - Chills [Recovered/Resolved]
  - Fatigue [Recovered/Resolved]
  - Pruritus [Recovered/Resolved]
  - Off label use [Unknown]
  - Sleep apnoea syndrome [Recovered/Resolved]

NARRATIVE: CASE EVENT DATE: 20200206
